FAERS Safety Report 24213585 (Version 1)
Quarter: 2024Q3

REPORT INFORMATION
  Report Type: Spontaneous
  Country: US (occurrence: US)
  Receive Date: 20240815
  Receipt Date: 20240815
  Transmission Date: 20241017
  Serious: No
  Sender: ROCHE
  Company Number: US-ROCHE-10000054874

PATIENT
  Age: 80 Year
  Sex: Female

DRUGS (4)
  1. VABYSMO [Suspect]
     Active Substance: FARICIMAB\FARICIMAB-SVOA
     Indication: Neovascular age-related macular degeneration
     Dosage: VIALS 6MG/0.05ML
     Route: 065
     Dates: start: 20240515
  2. VABYSMO [Suspect]
     Active Substance: FARICIMAB\FARICIMAB-SVOA
     Indication: Choroidal neovascularisation
  3. AVASTIN [Suspect]
     Active Substance: BEVACIZUMAB
     Indication: Neovascular age-related macular degeneration
     Dosage: RIGHT EYE
     Route: 065
     Dates: start: 20230809, end: 20240417
  4. AVASTIN [Suspect]
     Active Substance: BEVACIZUMAB
     Indication: Choroidal neovascularisation

REACTIONS (4)
  - Off label use [Unknown]
  - Product packaging quantity issue [Unknown]
  - Product quality issue [Unknown]
  - No adverse event [Unknown]

NARRATIVE: CASE EVENT DATE: 20240809
